FAERS Safety Report 5825739-2 (Version None)
Quarter: 2008Q3

REPORT INFORMATION
  Report Type: 
  Country: None (occurrence: None)
  Receive Date: 20080729
  Receipt Date: 20080718
  Transmission Date: 20090109
  Serious: Yes (Other)
  Sender: FDA-Public Use
  Company Number: JP-MERCK-0807USA04247

PATIENT
  Age: 8 Year
  Sex: Male
  Weight: 33 kg

DRUGS (5)
  1. SINGULAIR [Suspect]
     Indication: COUGH
     Route: 048
     Dates: start: 20080705, end: 20080707
  2. ZITHROMAX [Concomitant]
     Route: 048
     Dates: start: 20080705, end: 20080707
  3. BIO THREE [Concomitant]
     Route: 048
     Dates: start: 20080705, end: 20080707
  4. ASTOMIN [Concomitant]
     Route: 048
     Dates: start: 20080705, end: 20080712
  5. DASEN [Concomitant]
     Route: 048
     Dates: start: 20080705, end: 20080707

REACTIONS (2)
  - ABNORMAL BEHAVIOUR [None]
  - AGITATION [None]
